FAERS Safety Report 15472465 (Version 3)
Quarter: 2018Q4

REPORT INFORMATION
  Report Type: Spontaneous
  Country: PL (occurrence: PL)
  Receive Date: 20181008
  Receipt Date: 20181130
  Transmission Date: 20190205
  Serious: Yes (Life-Threatening, Hospitalization)
  Sender: FDA-Public Use
  Company Number: PL-ROCHE-2194116

PATIENT
  Sex: Female

DRUGS (2)
  1. COTELLIC [Suspect]
     Active Substance: COBIMETINIB
     Indication: PRODUCT USED FOR UNKNOWN INDICATION
     Route: 065
     Dates: start: 20180725, end: 20180909
  2. ZELBORAF [Suspect]
     Active Substance: VEMURAFENIB
     Indication: PRODUCT USED FOR UNKNOWN INDICATION
     Dosage: 960 MG X 2
     Route: 065
     Dates: start: 20180725, end: 20180909

REACTIONS (9)
  - Gastrointestinal perforation [Unknown]
  - Abdominal discomfort [Unknown]
  - Dyschezia [Unknown]
  - Constipation [Unknown]
  - Abdominal pain [Unknown]
  - Liver disorder [Unknown]
  - Faeces discoloured [Unknown]
  - Gastrointestinal disorder [Unknown]
  - Abnormal faeces [Unknown]
